FAERS Safety Report 16025359 (Version 1)
Quarter: 2019Q1

REPORT INFORMATION
  Report Type: Spontaneous
  Country: BR (occurrence: BR)
  Receive Date: 20190301
  Receipt Date: 20190301
  Transmission Date: 20190418
  Serious: Yes (Hospitalization, Other)
  Sender: FDA-Public Use
  Company Number: BR-GILEAD-2019-0393897

PATIENT
  Age: 62 Year
  Sex: Female

DRUGS (4)
  1. VIREAD [Suspect]
     Active Substance: TENOFOVIR DISOPROXIL FUMARATE
     Indication: HIV INFECTION
     Dosage: UNK
     Route: 065
     Dates: start: 2014
  2. LAMIVUDINE. [Concomitant]
     Active Substance: LAMIVUDINE
  3. EMTRICITABINE/TENOFOVIR DISOPROXIL FUMARATE/EFAVIRENZ [Concomitant]
  4. EFAVIRENZ. [Concomitant]
     Active Substance: EFAVIRENZ

REACTIONS (5)
  - Acute kidney injury [Unknown]
  - Hyperparathyroidism secondary [Unknown]
  - Fanconi syndrome acquired [Unknown]
  - Vitamin D deficiency [Unknown]
  - Bone lesion [Unknown]
